FAERS Safety Report 6233474-4 (Version None)
Quarter: 2009Q2

REPORT INFORMATION
  Report Type: 
  Country: None (occurrence: None)
  Receive Date: 20090617
  Receipt Date: 20090615
  Transmission Date: 20091009
  Serious: Yes (Hospitalization, Other)
  Sender: FDA-Public Use
  Company Number: DE-WYE-G03845109

PATIENT
  Age: 32 Year
  Sex: Male
  Weight: 48 kg

DRUGS (3)
  1. VENLAFAXINE HCL [Suspect]
     Indication: SCHIZOAFFECTIVE DISORDER
     Dosage: UP TO 300 MG/D
     Route: 048
     Dates: start: 20061101, end: 20090116
  2. VENLAFAXINE HCL [Suspect]
     Indication: SCHIZOPHRENIA, UNDIFFERENTIATED TYPE
  3. SEROQUEL [Concomitant]
     Indication: SCHIZOPHRENIA, UNDIFFERENTIATED TYPE
     Dosage: MAX. 1200 MG PER DAY
     Route: 048

REACTIONS (3)
  - DRUG ABUSE [None]
  - DRUG DEPENDENCE [None]
  - MANIA [None]
